FAERS Safety Report 14588348 (Version 1)
Quarter: 2018Q1

REPORT INFORMATION
  Report Type: Spontaneous
  Country: US (occurrence: US)
  Receive Date: 20180301
  Receipt Date: 20180301
  Transmission Date: 20180509
  Serious: Yes (Hospitalization)
  Sender: FDA-Public Use
  Company Number: None

PATIENT
  Age: 72 Year
  Sex: Male

DRUGS (1)
  1. SULFAMETHIZOLE/TRIMETHOPRIM [Suspect]
     Active Substance: SULFAMETHOXAZOLE\TRIMETHOPRIM
     Indication: INFECTION PROPHYLAXIS
     Route: 048
     Dates: start: 20180105, end: 20180205

REACTIONS (7)
  - Rash [None]
  - Drug eruption [None]
  - Therapy cessation [None]
  - Blister [None]
  - Genital rash [None]
  - Erythema [None]
  - Penile exfoliation [None]

NARRATIVE: CASE EVENT DATE: 20180205
